FAERS Safety Report 5566829-1 (Version None)
Quarter: 2007Q4

REPORT INFORMATION
  Report Type: 
  Country: None (occurrence: None)
  Receive Date: 20071219
  Receipt Date: 20071214
  Transmission Date: 20080405
  Serious: Yes (Hospitalization)
  Sender: FDA-Public Use
  Company Number: B0500280A

PATIENT
  Age: 51 Year
  Weight: 70 kg

DRUGS (7)
  1. MALARONE [Suspect]
     Indication: PROPHYLAXIS
     Route: 048
     Dates: start: 20070401, end: 20070401
  2. AMARYL [Concomitant]
     Dosage: 2MG PER DAY
     Route: 048
  3. DIXARIT [Concomitant]
     Dosage: 25UG PER DAY
     Route: 048
  4. METFORMIN HCL [Concomitant]
     Dosage: 500MG TWICE PER DAY
     Route: 048
  5. PANTOPRAZOLE SODIUM [Concomitant]
     Dosage: 40MG PER DAY
     Route: 048
  6. SELEKTINE [Concomitant]
     Dosage: 20MG PER DAY
     Route: 048
  7. ZOLOFT [Concomitant]
     Dosage: 50MG PER DAY
     Route: 048

REACTIONS (1)
  - NEPHRITIS INTERSTITIAL [None]
